FAERS Safety Report 14843293 (Version 1)
Quarter: 2018Q2

REPORT INFORMATION
  Report Type: Spontaneous
  Country: GB (occurrence: GB)
  Receive Date: 20180503
  Receipt Date: 20180503
  Transmission Date: 20180711
  Serious: Yes (Hospitalization)
  Sender: FDA-Public Use
  Company Number: GB-PFIZER INC-2018173422

PATIENT
  Age: 81 Year
  Sex: Male

DRUGS (1)
  1. LORAZEPAM. [Suspect]
     Active Substance: LORAZEPAM
     Indication: CONFUSIONAL STATE
     Dosage: 1 MG, UNK
     Route: 030
     Dates: start: 20180213

REACTIONS (2)
  - Cardiac arrest [Unknown]
  - Aspiration [Unknown]

NARRATIVE: CASE EVENT DATE: 20180213
